FAERS Safety Report 5366335-3 (Version None)
Quarter: 2007Q2

REPORT INFORMATION
  Report Type: 
  Country: None (occurrence: None)
  Receive Date: 20070620
  Receipt Date: 20070620
  Transmission Date: 20071010
  Serious: Yes (Hospitalization)
  Sender: FDA-Public Use
  Company Number: None

PATIENT
  Age: 78 Year
  Sex: Male

DRUGS (4)
  1. LISINOPRIL [Suspect]
     Indication: CORONARY ARTERY DISEASE
     Dosage: 10MG EVERY DAY PO
     Route: 048
     Dates: start: 20060127, end: 20070511
  2. LISINOPRIL [Suspect]
     Indication: DIABETES MELLITUS
     Dosage: 10MG EVERY DAY PO
     Route: 048
     Dates: start: 20060127, end: 20070511
  3. LISINOPRIL [Suspect]
     Indication: DIASTOLIC DYSFUNCTION
     Dosage: 10MG EVERY DAY PO
     Route: 048
     Dates: start: 20060127, end: 20070511
  4. METOPROLOL SUCCINATE [Suspect]
     Indication: CORONARY ARTERY DISEASE
     Dosage: 12.5MG BID PO
     Route: 048

REACTIONS (3)
  - BRADYCARDIA [None]
  - HYPOTENSION [None]
  - SYNCOPE [None]
